FAERS Safety Report 9786641 (Version 2)
Quarter: 2014Q1

REPORT INFORMATION
  Report Type: Spontaneous
  Country: BH (occurrence: BH)
  Receive Date: 20131227
  Receipt Date: 20140102
  Transmission Date: 20141002
  Serious: Yes (Other)
  Sender: FDA-Public Use
  Company Number: BH-VERTEX PHARMACEUTICALS INC-2013-012051

PATIENT
  Age: 27 Year
  Sex: Female

DRUGS (3)
  1. INCIVO [Suspect]
     Indication: HEPATITIS C
     Dosage: 750 MG, TID
     Route: 048
     Dates: start: 201208, end: 201211
  2. PEGASYS [Suspect]
     Indication: HEPATITIS C
     Dosage: 1 DF, QW
     Route: 050
     Dates: start: 201208, end: 201308
  3. RIBAVIRIN [Suspect]
     Indication: HEPATITIS C
     Dosage: 400 MG, TID
     Route: 048
     Dates: start: 201208, end: 201308

REACTIONS (3)
  - Hepatitis C [Not Recovered/Not Resolved]
  - Anaemia [Recovered/Resolved]
  - Rash [Recovered/Resolved]
